FAERS Safety Report 23256540 (Version 1)
Quarter: 2023Q4

REPORT INFORMATION
  Report Type: Spontaneous
  Country: US (occurrence: US)
  Receive Date: 20231204
  Receipt Date: 20231204
  Transmission Date: 20240109
  Serious: No
  Sender: FDA-Public Use
  Company Number: US-ALK-ABELLO A/S-2023AA004084

PATIENT

DRUGS (21)
  1. ACER NEGUNDO POLLEN [Suspect]
     Active Substance: ACER NEGUNDO POLLEN
     Indication: Product used for unknown indication
     Route: 058
  2. ALTERNARIA ALTERNATA [Suspect]
     Active Substance: ALTERNARIA ALTERNATA
     Indication: Product used for unknown indication
     Dosage: UNK
  3. FRAXINUS AMERICANA POLLEN [Suspect]
     Active Substance: FRAXINUS AMERICANA POLLEN
     Indication: Product used for unknown indication
     Route: 058
  4. BETULA PENDULA POLLEN [Suspect]
     Active Substance: BETULA PENDULA POLLEN
     Indication: Product used for unknown indication
     Route: 058
  5. FELIS CATUS HAIR [Suspect]
     Active Substance: FELIS CATUS HAIR
     Indication: Product used for unknown indication
     Route: 058
  6. CYNODON DACTYLON POLLEN [Suspect]
     Active Substance: CYNODON DACTYLON POLLEN
     Indication: Product used for unknown indication
     Dosage: UNK
     Route: 058
  7. CANIS LUPUS FAMILIARIS SKIN [Suspect]
     Active Substance: CANIS LUPUS FAMILIARIS SKIN
     Indication: Product used for unknown indication
     Route: 058
  8. ULMUS CRASSIFOLIA POLLEN [Suspect]
     Active Substance: ULMUS CRASSIFOLIA POLLEN
     Indication: Product used for unknown indication
     Route: 058
  9. CARYA OVATA POLLEN [Suspect]
     Active Substance: CARYA OVATA POLLEN
     Indication: Product used for unknown indication
     Route: 058
  10. SORGHUM HALEPENSE POLLEN [Suspect]
     Active Substance: SORGHUM HALEPENSE POLLEN
     Indication: Product used for unknown indication
     Route: 058
  11. MUS MUSCULUS SKIN [Suspect]
     Active Substance: MUS MUSCULUS SKIN
     Indication: Product used for unknown indication
     Route: 058
  12. DERMATOPHAGOIDES FARINAE [Suspect]
     Active Substance: DERMATOPHAGOIDES FARINAE
     Indication: Product used for unknown indication
     Route: 058
  13. DERMATOPHAGOIDES PTERONYSSINUS [Suspect]
     Active Substance: DERMATOPHAGOIDES PTERONYSSINUS
     Indication: Product used for unknown indication
     Route: 058
  14. URTICA DIOICA WHOLE [Suspect]
     Active Substance: URTICA DIOICA WHOLE
     Indication: Product used for unknown indication
     Route: 058
  15. QUERCUS ALBA POLLEN [Suspect]
     Active Substance: QUERCUS ALBA POLLEN
     Indication: Product used for unknown indication
     Route: 058
  16. AMBROSIA ARTEMISIIFOLIA POLLEN [Suspect]
     Active Substance: AMBROSIA ARTEMISIIFOLIA POLLEN
     Indication: Product used for unknown indication
     Route: 058
  17. SALSOLA KALI POLLEN [Suspect]
     Active Substance: SALSOLA KALI POLLEN
     Indication: Product used for unknown indication
     Route: 058
  18. RUMEX ACETOSELLA POLLEN [Suspect]
     Active Substance: RUMEX ACETOSELLA POLLEN
     Indication: Product used for unknown indication
     Route: 058
  19. PLATANUS OCCIDENTALIS POLLEN [Suspect]
     Active Substance: PLATANUS OCCIDENTALIS POLLEN
     Indication: Product used for unknown indication
     Route: 058
  20. PHLEUM PRATENSE POLLEN [Suspect]
     Active Substance: PHLEUM PRATENSE POLLEN
     Indication: Product used for unknown indication
  21. POPULUS ALBA POLLEN [Suspect]
     Active Substance: POPULUS ALBA POLLEN
     Indication: Product used for unknown indication
     Route: 058

REACTIONS (2)
  - Injection site urticaria [Unknown]
  - Injection site reaction [Unknown]
